FAERS Safety Report 8963738 (Version 2)
Quarter: 2012Q4

REPORT INFORMATION
  Report Type: 
  Country: US (occurrence: US)
  Receive Date: 20121214
  Receipt Date: 20121231
  Transmission Date: 20130627
  Serious: Yes (Hospitalization)
  Sender: FDA-Public Use
  Company Number: US-MERCK-1212USA004910

PATIENT
  Age: 60 Year
  Sex: Female

DRUGS (3)
  1. JANUMET [Suspect]
     Indication: DIABETES MELLITUS
     Dosage: 500mg/50 mg
     Route: 048
     Dates: start: 201201
  2. RISPERDAL [Concomitant]
  3. ASPIRIN [Concomitant]

REACTIONS (1)
  - Adverse event [Unknown]
